FAERS Safety Report 7397354-3 (Version None)
Quarter: 2011Q2

REPORT INFORMATION
  Report Type: 
  Country: None (occurrence: None)
  Receive Date: 20110406
  Receipt Date: 20110331
  Transmission Date: 20111010
  Serious: Yes (Life-Threatening, Hospitalization)
  Sender: FDA-Public Use
  Company Number: BR-PFIZER INC-2011072558

PATIENT
  Age: 48 Year
  Sex: Female
  Weight: 86 kg

DRUGS (5)
  1. DEPO-PROVERA [Suspect]
     Indication: OFF LABEL USE
     Dosage: 150 MG, EVERY 3 MONTHS
     Route: 030
     Dates: start: 20090101, end: 20101101
  2. CENTRUM [Concomitant]
     Dosage: UNK
     Dates: start: 20080101
  3. PRIMOSISTON [Suspect]
     Dosage: EVERY 12 HOURS
  4. DEPO-PROVERA [Suspect]
     Indication: UTERINE LEIOMYOMA
  5. CAPTOPRIL [Concomitant]
     Indication: HYPERTENSION
     Dosage: UNK
     Dates: start: 20000101

REACTIONS (6)
  - WEIGHT INCREASED [None]
  - NAUSEA [None]
  - DIZZINESS [None]
  - VAGINAL HAEMORRHAGE [None]
  - IRRITABILITY [None]
  - TACHYCARDIA [None]
